FAERS Safety Report 16040635 (Version 1)
Quarter: 2019Q2

REPORT INFORMATION
  Report Type: Spontaneous
  Country: US (occurrence: US)
  Receive Date: 20190305
  Receipt Date: 20190305
  Transmission Date: 20190711
  Serious: Yes (Disabling, Other)
  Sender: FDA-Public Use
  Company Number: None

PATIENT
  Age: 42 Year
  Sex: Female
  Weight: 126 kg

DRUGS (4)
  1. NEIL MED CLEAR CANAL [Concomitant]
  2. NEIL MED NASAL WASH [Concomitant]
  3. SYMBICORT [Suspect]
     Active Substance: BUDESONIDE\FORMOTEROL FUMARATE DIHYDRATE
     Indication: CHRONIC OBSTRUCTIVE PULMONARY DISEASE
     Dosage: ?          OTHER STRENGTH:120 INHALATIONS;QUANTITY:2 PUFF(S);?
     Route: 048
     Dates: start: 20190115, end: 20190305
  4. COMBIVENT [Concomitant]
     Active Substance: ALBUTEROL SULFATE\IPRATROPIUM BROMIDE

REACTIONS (5)
  - Decreased appetite [None]
  - Diarrhoea [None]
  - Abdominal pain upper [None]
  - Nervousness [None]
  - Insomnia [None]

NARRATIVE: CASE EVENT DATE: 20190115
